FAERS Safety Report 8559346-8 (Version None)
Quarter: 2012Q3

REPORT INFORMATION
  Report Type: 
  Country: None (occurrence: None)
  Receive Date: 20120802
  Receipt Date: 20120731
  Transmission Date: 20120928
  Serious: Yes (Death, Hospitalization)
  Sender: FDA-Public Use
  Company Number: PHHY2012IR066126

PATIENT
  Age: 24 Year
  Sex: Male
  Weight: 55 kg

DRUGS (11)
  1. FOLIC ACID [Concomitant]
     Dosage: ONCE A DAILY
     Route: 048
  2. CALCIUM [Concomitant]
     Dosage: ONCE A DAILY
     Route: 048
  3. DIGOXIN [Concomitant]
     Indication: CARDIAC FAILURE
     Dosage: UNK UKN, UNK
     Route: 048
     Dates: start: 20110701
  4. EXJADE [Suspect]
     Indication: THALASSAEMIA
     Dosage: 500 MG, TID
     Route: 048
     Dates: start: 20120301, end: 20120401
  5. DESFERAL [Suspect]
     Indication: THALASSAEMIA BETA
     Dosage: 40-50 MG/KG/DAY (5-7 DAYS)
     Route: 042
     Dates: start: 19660101, end: 20120301
  6. INSULIN [Concomitant]
     Dosage: 2 U, UNK
  7. DEFERIPRONE [Suspect]
     Indication: THALASSAEMIA BETA
     Dosage: TDS
     Route: 048
     Dates: start: 19660101
  8. ASCORBIC ACID [Concomitant]
     Dosage: ONCE A DAILY
     Route: 048
  9. LASIX [Concomitant]
     Indication: CARDIAC FAILURE
     Dosage: UNK UKN, UNK
     Dates: start: 20110701
  10. CAPTOPRIL [Concomitant]
     Indication: CARDIAC FAILURE
     Dosage: UNK UKN, UNK
     Route: 048
     Dates: start: 20110701
  11. DESFERAL [Suspect]
     Dosage: 60MG/KG/DAY
     Route: 042
     Dates: start: 20120401

REACTIONS (3)
  - CARDIAC FAILURE [None]
  - CARDIAC DISORDER [None]
  - SERUM FERRITIN INCREASED [None]
